FAERS Safety Report 9555204 (Version 1)
Quarter: 2013Q3

REPORT INFORMATION
  Report Type: Spontaneous
  Country: US (occurrence: None)
  Receive Date: 20130925
  Receipt Date: 20130925
  Transmission Date: 20140515
  Serious: Yes (Hospitalization)
  Sender: FDA-Public Use
  Company Number: None

PATIENT
  Age: 24 Year
  Sex: Male
  Weight: 129.28 kg

DRUGS (3)
  1. LAMOTRIGINE [Suspect]
     Dosage: 1 PILL
     Dates: start: 20130906, end: 20130908
  2. LEVETIRACETAM [Concomitant]
  3. DILANTIN [Concomitant]

REACTIONS (3)
  - Malaise [None]
  - Delusion [None]
  - Chest pain [None]
